FAERS Safety Report 22191484 (Version 1)
Quarter: 2023Q2

REPORT INFORMATION
  Report Type: Spontaneous
  Country: US (occurrence: US)
  Receive Date: 20230410
  Receipt Date: 20230410
  Transmission Date: 20230721
  Serious: No
  Sender: FDA-Public Use
  Company Number: US-Cardinal Health 414-CAHLYMPH-AE-23-10

PATIENT
  Age: 55 Year
  Sex: Female
  Weight: 73.5 kg

DRUGS (3)
  1. LYMPHAZURIN [Concomitant]
     Active Substance: ISOSULFAN BLUE
     Dosage: ADMINISTERED IN THE SUBAREOLAR PLANE, BILATERALLY
     Route: 050
  2. LYMPHOSEEK [Suspect]
     Active Substance: TECHNETIUM TC-99M TILMANOCEPT
     Indication: Lymphatic mapping
     Route: 023
     Dates: start: 20220928, end: 20220928
  3. LYMPHOSEEK [Suspect]
     Active Substance: TECHNETIUM TC-99M TILMANOCEPT
     Indication: Lymphatic mapping
     Route: 023
     Dates: start: 20220928, end: 20220928

REACTIONS (9)
  - Lymphoedema [Not Recovered/Not Resolved]
  - Axillary web syndrome [Not Recovered/Not Resolved]
  - Multiple allergies [Recovered/Resolved]
  - Erythema [Recovered/Resolved]
  - Rash [Recovered/Resolved]
  - Muscle spasms [Not Recovered/Not Resolved]
  - Breast pain [Not Recovered/Not Resolved]
  - Necrosis [Unknown]
  - Nipple resection [Recovered/Resolved]

NARRATIVE: CASE EVENT DATE: 20221105
